FAERS Safety Report 11077933 (Version 1)
Quarter: 2015Q2

REPORT INFORMATION
  Report Type: Spontaneous
  Country: US (occurrence: US)
  Receive Date: 20150430
  Receipt Date: 20150430
  Transmission Date: 20150821
  Serious: Yes (Death, Hospitalization, Other)
  Sender: FDA-Public Use
  Company Number: US-ASTRAZENECA-2015SE39539

PATIENT
  Age: 83 Year
  Sex: Female

DRUGS (1)
  1. NEXIUM [Suspect]
     Active Substance: ESOMEPRAZOLE MAGNESIUM
     Indication: GASTROOESOPHAGEAL REFLUX DISEASE
     Route: 048
     Dates: end: 20121124

REACTIONS (7)
  - Head injury [Unknown]
  - Intentional product misuse [Unknown]
  - Cardiac disorder [Unknown]
  - Fall [Unknown]
  - Parkinson^s disease [Unknown]
  - Headache [Unknown]
  - Cerebral haemorrhage [Fatal]
